FAERS Safety Report 8840260 (Version 2)
Quarter: 2012Q4

REPORT INFORMATION
  Report Type: 
  Country: JP (occurrence: JP)
  Receive Date: 20121015
  Receipt Date: 20121022
  Transmission Date: 20130627
  Serious: Yes (Other)
  Sender: FDA-Public Use
  Company Number: JP-GLAXOSMITHKLINE-B0837308A

PATIENT
  Age: 7 None
  Sex: Male

DRUGS (1)
  1. PAXIL [Suspect]
     Indication: DEPRESSION
     Dosage: 30MG Per day
     Route: 048

REACTIONS (3)
  - Duodenal ulcer [Unknown]
  - Small intestinal haemorrhage [Unknown]
  - Occult blood [Unknown]
